FAERS Safety Report 15439393 (Version 3)
Quarter: 2019Q2

REPORT INFORMATION
  Report Type: Report from Study
  Country: CA (occurrence: CA)
  Receive Date: 20180928
  Receipt Date: 20190611
  Transmission Date: 20190711
  Serious: Yes (Death, Hospitalization)
  Sender: FDA-Public Use
  Company Number: CA-INCYTE CORPORATION-2017IN010657

PATIENT

DRUGS (4)
  1. JAKAVI [Suspect]
     Active Substance: RUXOLITINIB
     Dosage: 10 MG, BID
     Route: 048
     Dates: start: 20180118
  2. JAKAVI [Suspect]
     Active Substance: RUXOLITINIB
     Dosage: 7.5 MG, BID
     Route: 048
  3. JAKAVI [Suspect]
     Active Substance: RUXOLITINIB
     Dosage: 5 MG, BID
     Route: 048
  4. JAKAVI [Suspect]
     Active Substance: RUXOLITINIB
     Indication: MYELOFIBROSIS
     Dosage: 7.5 MG, BID
     Route: 048
     Dates: start: 20171117

REACTIONS (15)
  - Fatigue [Unknown]
  - Renal cancer [Unknown]
  - Sepsis [Unknown]
  - Malaise [Unknown]
  - Renal haemorrhage [Unknown]
  - Feeling abnormal [Unknown]
  - Second primary malignancy [Unknown]
  - Headache [Not Recovered/Not Resolved]
  - Haemoglobin decreased [Unknown]
  - Ureteric obstruction [Unknown]
  - Urinary bladder haemorrhage [Unknown]
  - Death [Fatal]
  - Palpitations [Unknown]
  - Dyspnoea [Unknown]
  - Depression [Unknown]

NARRATIVE: CASE EVENT DATE: 201808
